FAERS Safety Report 8890780 (Version 1)
Quarter: 2012Q4

REPORT INFORMATION
  Report Type: 
  Country: BE (occurrence: BE)
  Receive Date: 20121106
  Receipt Date: 20121106
  Transmission Date: 20130627
  Serious: Yes (Other)
  Sender: FDA-Public Use
  Company Number: PHHY2012BE099636

PATIENT
  Age: 66 Year
  Sex: Female

DRUGS (1)
  1. ACETYLSALICYLIC ACID [Suspect]

REACTIONS (5)
  - Extradural haematoma [Recovered/Resolved]
  - Ischaemic stroke [Recovered/Resolved]
  - Paraesthesia [Recovered/Resolved]
  - Hemiparesis [Recovered/Resolved]
  - Pain [Recovered/Resolved]
